FAERS Safety Report 6344415-3 (Version None)
Quarter: 2009Q3

REPORT INFORMATION
  Report Type: 
  Country: None (occurrence: None)
  Receive Date: 20090908
  Receipt Date: 20090831
  Transmission Date: 20100115
  Serious: Yes (Other)
  Sender: FDA-Public Use
  Company Number: PHHY2009BR37025

PATIENT
  Age: 23 Year
  Sex: Female

DRUGS (1)
  1. FORASEQ [Suspect]
     Dosage: UNK
     Dates: start: 20090821

REACTIONS (2)
  - OROPHARYNGEAL PAIN [None]
  - PHARYNGEAL OEDEMA [None]
